FAERS Safety Report 21293310 (Version 2)
Quarter: 2023Q4

REPORT INFORMATION
  Report Type: Spontaneous
  Country: JP (occurrence: JP)
  Receive Date: 20220905
  Receipt Date: 20231222
  Transmission Date: 20240110
  Serious: Yes (Death, Other)
  Sender: FDA-Public Use
  Company Number: JP-TAKEDA-2022TJP071968

PATIENT
  Sex: Male

DRUGS (1)
  1. CABOMETYX [Suspect]
     Active Substance: CABOZANTINIB S-MALATE
     Indication: Renal cell carcinoma
     Dosage: UNK
     Route: 048
     Dates: start: 20220616

REACTIONS (1)
  - Death [Fatal]

NARRATIVE: CASE EVENT DATE: 20220830
